FAERS Safety Report 8561206-3 (Version None)
Quarter: 2012Q3

REPORT INFORMATION
  Report Type: 
  Country: None (occurrence: None)
  Receive Date: 20120802
  Receipt Date: 20120726
  Transmission Date: 20120928
  Serious: Yes (Hospitalization)
  Sender: FDA-Public Use
  Company Number: JP-VERTEX PHARMACEUTICALS INC.-AE-2012-007182

PATIENT
  Age: 63 Year
  Sex: Female

DRUGS (8)
  1. GASMOTIN [Concomitant]
     Route: 048
     Dates: start: 20120126
  2. REBETOL [Concomitant]
     Route: 048
     Dates: start: 20120329
  3. REBETOL [Concomitant]
     Route: 048
     Dates: start: 20120531, end: 20120712
  4. PEG-INTRON [Concomitant]
     Route: 058
     Dates: start: 20120126, end: 20120712
  5. TELAVIC (TELAPREVIR) [Suspect]
     Route: 048
     Dates: start: 20120128
  6. TELAVIC (TELAPREVIR) [Suspect]
     Indication: HEPATITIS C
     Route: 048
     Dates: start: 20120126, end: 20120128
  7. REBETOL [Concomitant]
     Route: 048
     Dates: start: 20120126, end: 20120328
  8. REBETOL [Concomitant]
     Route: 048
     Dates: start: 20120426, end: 20120530

REACTIONS (1)
  - DECREASED APPETITE [None]
